FAERS Safety Report 8534364-4 (Version None)
Quarter: 2012Q3

REPORT INFORMATION
  Report Type: 
  Country: None (occurrence: None)
  Receive Date: 20120724
  Receipt Date: 20120718
  Transmission Date: 20120928
  Serious: Yes (Other)
  Sender: FDA-Public Use
  Company Number: PHEH2012US008642

PATIENT
  Sex: Female
  Weight: 77.098 kg

DRUGS (7)
  1. TRAMADOL HYDROCHLORIDE [Concomitant]
  2. SYNTHROID [Concomitant]
  3. PREMARIN [Concomitant]
  4. ZANAFLEX [Concomitant]
  5. ARTHROTEC [Concomitant]
  6. GILENYA [Suspect]
     Indication: MULTIPLE SCLEROSIS
     Dosage: 0.5 MG, QD
     Route: 048
     Dates: start: 20110601
  7. LYRICA [Concomitant]

REACTIONS (16)
  - LYMPHADENOPATHY [None]
  - PYELONEPHRITIS [None]
  - RENAL PAIN [None]
  - BLOOD PRESSURE INCREASED [None]
  - MALAISE [None]
  - ANXIETY [None]
  - FATIGUE [None]
  - DIZZINESS [None]
  - BACK PAIN [None]
  - TREMOR [None]
  - URINARY TRACT INFECTION [None]
  - BLOOD URINE [None]
  - NAUSEA [None]
  - PERIPHERAL COLDNESS [None]
  - FLUSHING [None]
  - NECK PAIN [None]
